FAERS Safety Report 6024874-6 (Version None)
Quarter: 2008Q4

REPORT INFORMATION
  Report Type: 
  Country: None (occurrence: None)
  Receive Date: 20081231
  Receipt Date: 20081222
  Transmission Date: 20090506
  Serious: Yes (Other)
  Sender: FDA-Public Use
  Company Number: GB-PFIZER INC-2008159144

PATIENT

DRUGS (2)
  1. CHAMPIX [Suspect]
     Indication: SMOKING CESSATION THERAPY
     Route: 048
     Dates: start: 20081019
  2. ZYBAN [Concomitant]
     Route: 048
     Dates: start: 20080922, end: 20081009

REACTIONS (2)
  - MOOD ALTERED [None]
  - SUICIDAL IDEATION [None]
